FAERS Safety Report 4553868-2 (Version None)
Quarter: 2005Q1

REPORT INFORMATION
  Report Type: 
  Country: None (occurrence: None)
  Receive Date: 20050113
  Receipt Date: 20050113
  Transmission Date: 20050727
  Serious: Yes (Life-Threatening, Hospitalization, Other)
  Sender: FDA-Public Use
  Company Number: None

PATIENT
  Sex: Male
  Weight: 86.1834 kg

DRUGS (2)
  1. SMZ/TMP DS 800-160 [Suspect]
     Dates: start: 19990416
  2. TRILAFON [Suspect]
     Dosage: 4 MG X 1 OR X 2 A NIGHT
     Dates: start: 19990826

REACTIONS (11)
  - ABDOMINAL PAIN UPPER [None]
  - BACK PAIN [None]
  - DENTAL CARIES [None]
  - FEELING ABNORMAL [None]
  - GRAND MAL CONVULSION [None]
  - HYPOGLYCAEMIA [None]
  - MALAISE [None]
  - PAROSMIA [None]
  - RENAL PAIN [None]
  - TESTICULAR PAIN [None]
  - WEIGHT DECREASED [None]
